FAERS Safety Report 6962235-3 (Version None)
Quarter: 2010Q3

REPORT INFORMATION
  Report Type: 
  Country: None (occurrence: None)
  Receive Date: 20100901
  Receipt Date: 20100901
  Transmission Date: 20110219
  Serious: No
  Sender: FDA-Public Use
  Company Number: None

PATIENT
  Age: 95 Year
  Sex: Male
  Weight: 78.5 kg

DRUGS (1)
  1. HYDROXYUREA [Suspect]
     Indication: POLYCYTHAEMIA
     Dosage: 1000 MG EVERY DAY PO
     Route: 048
     Dates: start: 20090924, end: 20100430

REACTIONS (3)
  - COUGH [None]
  - LUNG DISORDER [None]
  - WHEEZING [None]
